FAERS Safety Report 7398784-6 (Version None)
Quarter: 2011Q2

REPORT INFORMATION
  Report Type: 
  Country: None (occurrence: None)
  Receive Date: 20110401
  Receipt Date: 20110401
  Transmission Date: 20111010
  Serious: Yes (Hospitalization)
  Sender: FDA-Public Use
  Company Number: None

PATIENT
  Sex: Female
  Weight: 14.5 kg

DRUGS (17)
  1. ACYCLOVIR [Concomitant]
  2. FLUCONAZOLE [Concomitant]
  3. MICAFUNGIN [Concomitant]
  4. BUMETANIDE [Concomitant]
  5. MEROPENEM [Concomitant]
  6. THIOTEPA [Suspect]
  7. MORPHINE [Concomitant]
  8. PANTOPRAZOLE SODIUM [Concomitant]
  9. PIPERACILLIN AND TAZOBACTAM [Concomitant]
  10. TOBRAMYCIN [Concomitant]
  11. URSODIOL [Concomitant]
  12. VANCOMYCIN [Concomitant]
  13. INTRALIPIDS [Suspect]
  14. ONDANSETRON [Concomitant]
  15. SPIRONOLACTONE [Concomitant]
  16. CYCLOPHOSPHAMIDE [Suspect]
  17. TPN ELECTROLYTES IN PLASTIC CONTAINER [Concomitant]

REACTIONS (5)
  - OXYGEN SATURATION DECREASED [None]
  - PYREXIA [None]
  - HEPATIC FAILURE [None]
  - VENOOCCLUSIVE LIVER DISEASE [None]
  - ATELECTASIS [None]
